FAERS Safety Report 24310913 (Version 2)
Quarter: 2024Q4

REPORT INFORMATION
  Report Type: Report from Study
  Country: BR (occurrence: BR)
  Receive Date: 20240912
  Receipt Date: 20241025
  Transmission Date: 20250115
  Serious: Yes (Other)
  Sender: BOEHRINGER INGELHEIM
  Company Number: BR-BoehringerIngelheim-2024-BI-047538

PATIENT
  Age: 67 Year
  Sex: Female
  Weight: 77 kg

DRUGS (5)
  1. JARDIANCE [Suspect]
     Active Substance: EMPAGLIFLOZIN
     Indication: Diabetes mellitus
     Dosage: ONE TABLET FASTING
     Route: 048
     Dates: start: 202403, end: 20240819
  2. INSULIN HUMAN [Concomitant]
     Active Substance: INSULIN HUMAN
     Indication: Product used for unknown indication
     Dosage: 24 UNITS IN THE MORNING AND 14 UNITS AT NIGHT
  3. Insulina Regular [Concomitant]
     Indication: Product used for unknown indication
     Dosage: 6 UNITS, BEFORE BREAKFAST AND DINNER
  4. LOSARTAN [Concomitant]
     Active Substance: LOSARTAN
     Indication: Product used for unknown indication
     Dosage: IN THE MORNING
  5. ATORVASTATIN [Concomitant]
     Active Substance: ATORVASTATIN
     Indication: Product used for unknown indication
     Dosage: ONE TABLET AT NIGHT

REACTIONS (9)
  - Weight decreased [Recovered/Resolved]
  - Therapeutic response unexpected [Recovered/Resolved]
  - Therapeutic response unexpected [Recovered/Resolved]
  - Bladder discomfort [Unknown]
  - Blood glucose increased [Recovered/Resolved]
  - Blood glucose increased [Recovered/Resolved]
  - Therapeutic response unexpected [Unknown]
  - Blood glucose increased [Unknown]
  - Limb discomfort [Unknown]

NARRATIVE: CASE EVENT DATE: 20240101
